FAERS Safety Report 6925911-4 (Version None)
Quarter: 2010Q3

REPORT INFORMATION
  Report Type: 
  Country: None (occurrence: None)
  Receive Date: 20100816
  Receipt Date: 20100803
  Transmission Date: 20110219
  Serious: Yes (Other)
  Sender: FDA-Public Use
  Company Number: PHFR2010GB01035

PATIENT
  Sex: Male

DRUGS (5)
  1. CLOZARIL [Suspect]
     Indication: SCHIZOPHRENIA
     Dosage: 550 MG/DAY
     Route: 048
     Dates: start: 20081027
  2. AMISULPRIDE [Suspect]
  3. METFORMIN [Concomitant]
     Dosage: 1000 MG
     Route: 065
  4. HYOSCINE HBR HYT [Concomitant]
     Dosage: 600 MCG
     Route: 065
  5. LANSOPRAZOLE [Concomitant]
     Dosage: 30 MG
     Route: 065

REACTIONS (1)
  - HEPATITIS C [None]
